FAERS Safety Report 10204041 (Version 1)
Quarter: 2014Q2

REPORT INFORMATION
  Report Type: Spontaneous
  Country: CA (occurrence: CA)
  Receive Date: 20140529
  Receipt Date: 20140529
  Transmission Date: 20141212
  Serious: Yes (Other)
  Sender: FDA-Public Use
  Company Number: CA-PFIZER INC-2014144063

PATIENT
  Age: 55 Year
  Sex: Female
  Weight: 75 kg

DRUGS (2)
  1. IRINOTECAN HCL [Suspect]
     Route: 065
  2. IRINOTECAN HCL [Suspect]
     Route: 065

REACTIONS (4)
  - Blood pressure increased [Recovered/Resolved]
  - Nausea [Recovered/Resolved]
  - Tongue disorder [Recovered/Resolved]
  - Vomiting [Recovered/Resolved]
